FAERS Safety Report 8809972 (Version 1)
Quarter: 2012Q4

REPORT INFORMATION
  Report Type: 
  Country: US (occurrence: US)
  Receive Date: 20120926
  Receipt Date: 20120926
  Transmission Date: 20130627
  Serious: No
  Sender: FDA-Public Use
  Company Number: US-009507513-1209USA007335

PATIENT
  Sex: Female
  Weight: 60.77 kg

DRUGS (10)
  1. MIRALAX [Suspect]
     Indication: CONSTIPATION
     Dosage: 17 g, q12h
     Route: 048
     Dates: start: 201206
  2. MIRALAX [Suspect]
     Indication: MEDICAL OBSERVATION
     Dosage: 17 g, qd
     Route: 048
     Dates: start: 201206
  3. INDERAL [Concomitant]
     Indication: MIGRAINE
     Dosage: UNK, Unknown
  4. IMIPRAMINE HYDROCHLORIDE [Concomitant]
     Indication: BIPOLAR DISORDER
     Dosage: UNK, Unknown
  5. ABILIFY [Concomitant]
     Indication: BIPOLAR DISORDER
     Dosage: UNK, Unknown
  6. ESTRACE [Concomitant]
     Indication: MENOPAUSE
     Dosage: UNK, Unknown
  7. PROVERA [Concomitant]
     Indication: MENOPAUSE
     Dosage: UNK, Unknown
  8. PRILOSEC [Concomitant]
     Indication: ULCER
     Dosage: UNK, Unknown
  9. VITAMINS (UNSPECIFIED) [Concomitant]
     Indication: PRODUCT USED FOR UNKNOWN INDICATION
     Dosage: UNK, Unknown
  10. CHOLECALCIFEROL [Concomitant]
     Indication: PRODUCT USED FOR UNKNOWN INDICATION
     Dosage: UNK, Unknown

REACTIONS (1)
  - Overdose [Unknown]
